FAERS Safety Report 4378594-4 (Version None)
Quarter: 2004Q2

REPORT INFORMATION
  Report Type: 
  Country: None (occurrence: None)
  Receive Date: 20040609
  Receipt Date: 20040525
  Transmission Date: 20050107
  Serious: No
  Sender: FDA-Public Use
  Company Number: JP-JNJFOC-20040501482

PATIENT
  Age: 27 Year
  Sex: Female

DRUGS (8)
  1. FENTANYL [Suspect]
     Indication: CANCER PAIN
     Dosage: SEE IMAGE
     Route: 062
     Dates: start: 20040301, end: 20040504
  2. FENTANYL [Suspect]
     Indication: CANCER PAIN
     Dosage: SEE IMAGE
     Route: 062
     Dates: start: 20040504
  3. FENTANYL CITRATE [Suspect]
     Indication: CANCER PAIN
     Dosage: 10 MG, 1 IN 1 DAY, INTRAVENOUS
     Route: 042
     Dates: start: 20040427
  4. DEXAMETHASONE [Concomitant]
  5. AMITRIPTYLINE HYDROCHLORIDE [Concomitant]
  6. KETAMINE HCL [Concomitant]
  7. CLONAZEPAM [Concomitant]
  8. LOXOPROFEN SODIUM (LOXOPROFEN SODIUM) [Concomitant]

REACTIONS (4)
  - DRUG LEVEL INCREASED [None]
  - PLATELET COUNT DECREASED [None]
  - RESPIRATORY RATE DECREASED [None]
  - SOMNOLENCE [None]
